FAERS Safety Report 6112892-9 (Version None)
Quarter: 2009Q1

REPORT INFORMATION
  Report Type: 
  Country: None (occurrence: None)
  Receive Date: 20090304
  Receipt Date: 20090304
  Transmission Date: 20090719
  Serious: Yes (Life-Threatening, Other)
  Sender: FDA-Public Use
  Company Number: None

PATIENT
  Age: 42 Year
  Sex: Male
  Weight: 102.9665 kg

DRUGS (1)
  1. LAMICTAL [Suspect]
     Indication: COMPLEX PARTIAL SEIZURES
     Dosage: 100 MG 1 1/2 BID ORAL
     Route: 048
     Dates: start: 20081101

REACTIONS (4)
  - CONVULSION [None]
  - MEMORY IMPAIRMENT [None]
  - STARING [None]
  - THERAPEUTIC RESPONSE UNEXPECTED WITH DRUG SUBSTITUTION [None]
